FAERS Safety Report 6288774-9 (Version None)
Quarter: 2009Q3

REPORT INFORMATION
  Report Type: 
  Country: None (occurrence: None)
  Receive Date: 20090729
  Receipt Date: 20070523
  Transmission Date: 20100115
  Serious: Yes (Other)
  Sender: FDA-Public Use
  Company Number: US-ASTRAZENECA-2006UW24093

PATIENT
  Age: 12243 Day
  Sex: Male
  Weight: 147 kg

DRUGS (8)
  1. SEROQUEL [Suspect]
     Indication: MENTAL DISORDER
     Dosage: 25 - 200 MG, FLUCTUATING
     Route: 048
     Dates: start: 20011206
  2. GEODON [Concomitant]
  3. RISPERDAL [Concomitant]
     Dates: start: 19950101
  4. TRILAFON [Concomitant]
  5. TRILEPTAL [Concomitant]
     Dosage: 150 MG 3 IN AM AND 1 IN HS
     Dates: start: 20010924
  6. PAXIL [Concomitant]
     Dosage: 20-30 MG
     Route: 048
     Dates: start: 20011206
  7. WELLBUTRIN SR [Concomitant]
     Dosage: 150 MG 1 AND 1, 8 HOURS LATER
     Route: 048
  8. KLONOPIN [Concomitant]
     Dosage: 0.5 MG 1 BID PRN
     Dates: start: 20020123

REACTIONS (4)
  - DIABETES MELLITUS [None]
  - DIABETES MELLITUS INADEQUATE CONTROL [None]
  - NEUROPATHY PERIPHERAL [None]
  - TYPE 2 DIABETES MELLITUS [None]
